FAERS Safety Report 5607985-6 (Version None)
Quarter: 2008Q1

REPORT INFORMATION
  Report Type: 
  Country: None (occurrence: None)
  Receive Date: 20080130
  Receipt Date: 20080125
  Transmission Date: 20080703
  Serious: Yes (Hospitalization)
  Sender: FDA-Public Use
  Company Number: B0491447A

PATIENT
  Age: 66 Year
  Sex: Male
  Weight: 49 kg

DRUGS (7)
  1. VALTREX [Suspect]
     Indication: HERPES ZOSTER
     Dosage: 1000MG PER DAY
     Route: 048
     Dates: start: 20071012, end: 20071012
  2. CELESTAMINE TAB [Concomitant]
     Indication: PRURIGO
     Route: 048
     Dates: start: 20070402
  3. CLARITIN [Concomitant]
     Indication: PRURIGO
     Dosage: 10MG PER DAY
     Route: 048
     Dates: start: 20060721
  4. AMLODIPINE BESYLATE [Concomitant]
     Indication: HYPERTENSION
     Dosage: 15MG PER DAY
     Route: 048
     Dates: start: 20050214
  5. CALTAN [Concomitant]
     Indication: BLOOD PHOSPHORUS INCREASED
     Dosage: 3000MG PER DAY
     Route: 048
     Dates: start: 20051205
  6. ALLOPURINOL [Concomitant]
     Dosage: 100MG PER DAY
     Route: 048
     Dates: start: 20060911
  7. AMLODIPINE BESYLATE [Concomitant]
     Dosage: 10MG PER DAY
     Route: 048
     Dates: start: 20050214

REACTIONS (6)
  - INSOMNIA [None]
  - NERVOUS SYSTEM DISORDER [None]
  - PSYCHIATRIC SYMPTOM [None]
  - PYREXIA [None]
  - RESTLESSNESS [None]
  - TREMOR [None]
